FAERS Safety Report 7332839-7 (Version None)
Quarter: 2011Q1

REPORT INFORMATION
  Report Type: 
  Country: None (occurrence: None)
  Receive Date: 20110304
  Receipt Date: 20110301
  Transmission Date: 20110831
  Serious: Yes (Life-Threatening, Hospitalization)
  Sender: FDA-Public Use
  Company Number: JP-MERCK-1101USA03056

PATIENT
  Age: 57 Year
  Sex: Female

DRUGS (4)
  1. CELECOX [Suspect]
     Indication: OSTEOARTHRITIS
     Route: 048
     Dates: end: 20091220
  2. LOXONIN [Suspect]
     Indication: OSTEOARTHRITIS
     Route: 048
     Dates: end: 20091220
  3. PEPCID RPD [Suspect]
     Route: 048
     Dates: start: 20091220, end: 20091221
  4. NAUZELIN [Suspect]
     Route: 048
     Dates: start: 20091220, end: 20091221

REACTIONS (1)
  - GASTRIC ULCER HAEMORRHAGE [None]
